FAERS Safety Report 6907985-X (Version None)
Quarter: 2010Q3

REPORT INFORMATION
  Report Type: 
  Country: None (occurrence: None)
  Receive Date: 20100727
  Receipt Date: 20100721
  Transmission Date: 20110219
  Serious: Yes (Death, Other)
  Sender: FDA-Public Use
  Company Number: US-SANOFI-AVENTIS-2010SA042698

PATIENT
  Sex: Female

DRUGS (1)
  1. LOVENOX [Suspect]
     Indication: ATRIAL FIBRILLATION
     Route: 058

REACTIONS (3)
  - DEATH [None]
  - DRUG ADMINISTRATION ERROR [None]
  - MUSCLE HAEMORRHAGE [None]
